FAERS Safety Report 15121589 (Version 1)
Quarter: 2018Q3

REPORT INFORMATION
  Report Type: Spontaneous
  Country: GB (occurrence: GB)
  Receive Date: 20180709
  Receipt Date: 20180709
  Transmission Date: 20181010
  Serious: Yes (Hospitalization)
  Sender: FDA-Public Use
  Company Number: GB-JNJFOC-20180706894

PATIENT
  Age: 65 Year
  Sex: Male

DRUGS (8)
  1. HYDROXYZINE [Concomitant]
     Active Substance: HYDROXYZINE HYDROCHLORIDE
     Dosage: AT NIGHT
     Route: 065
  2. SIMVASTATIN. [Concomitant]
     Active Substance: SIMVASTATIN
     Dosage: EVERY NIGHT
     Route: 065
  3. COCODAMOL [Concomitant]
     Active Substance: ACETAMINOPHEN\CODEINE PHOSPHATE
     Dosage: DOSE: 8MG/500 MG, 1?2 FOUR TIMES A DAY
     Route: 065
  4. CANAGLIFLOZIN [Suspect]
     Active Substance: CANAGLIFLOZIN
     Indication: PRODUCT USED FOR UNKNOWN INDICATION
     Dosage: EVERY MORNING
     Route: 048
     Dates: start: 201709
  5. SITAGLIPTIN [Concomitant]
     Active Substance: SITAGLIPTIN
     Route: 065
  6. METFORMIN [Concomitant]
     Active Substance: METFORMIN HYDROCHLORIDE
     Route: 065
  7. ALFUZOSIN [Concomitant]
     Active Substance: ALFUZOSIN
     Route: 065
  8. RAMIPRIL. [Concomitant]
     Active Substance: RAMIPRIL
     Dosage: EVERY MORNING
     Route: 065

REACTIONS (5)
  - Vomiting [Unknown]
  - Off label use [Unknown]
  - Incorrect dose administered [Unknown]
  - Ketoacidosis [Unknown]
  - Gastroenteritis [Unknown]

NARRATIVE: CASE EVENT DATE: 201709
